FAERS Safety Report 24374733 (Version 6)
Quarter: 2025Q2

REPORT INFORMATION
  Report Type: Spontaneous
  Country: US (occurrence: US)
  Receive Date: 20240927
  Receipt Date: 20250422
  Transmission Date: 20250716
  Serious: Yes (Hospitalization, Other)
  Sender: SANOFI AVENTIS
  Company Number: US-SA-2024SA278824

PATIENT
  Age: 75 Year
  Sex: Male
  Weight: 87.27 kg

DRUGS (26)
  1. REZUROCK [Suspect]
     Active Substance: BELUMOSUDIL
     Indication: Chronic graft versus host disease
     Dosage: 200 MG, QD
     Route: 048
     Dates: start: 202402
  2. REZUROCK [Suspect]
     Active Substance: BELUMOSUDIL
     Indication: Acute myeloid leukaemia
  3. AZITHROMYCIN [Concomitant]
     Active Substance: AZITHROMYCIN
  4. TRAZODONE [Concomitant]
     Active Substance: TRAZODONE HYDROCHLORIDE
  5. CENTRUM SILVER [ASCORBIC ACID;BIOTIN;CALCIUM;CALCIUM PHOSPHATE DIBASIC [Concomitant]
  6. ALEVE [Concomitant]
     Active Substance: NAPROXEN SODIUM
  7. LASIX [Concomitant]
     Active Substance: FUROSEMIDE
  8. SYMBICORT [Concomitant]
     Active Substance: BUDESONIDE\FORMOTEROL FUMARATE DIHYDRATE
  9. LOSARTAN [Concomitant]
     Active Substance: LOSARTAN
  10. VITAMINS [Concomitant]
     Active Substance: VITAMINS
  11. MEDROL [Concomitant]
     Active Substance: METHYLPREDNISOLONE
  12. PEPCID [Concomitant]
     Active Substance: FAMOTIDINE
  13. PRAVASTATIN [Concomitant]
     Active Substance: PRAVASTATIN
  14. DEXAMETHASONE [Concomitant]
     Active Substance: DEXAMETHASONE
  15. MIRALAX [Concomitant]
     Active Substance: POLYETHYLENE GLYCOL 3350
  16. DOXYCYCLINE [Concomitant]
     Active Substance: DOXYCYCLINE
  17. MECLIZINE [Concomitant]
     Active Substance: MECLIZINE HYDROCHLORIDE
  18. VALACYCLOVIR [Concomitant]
     Active Substance: VALACYCLOVIR HYDROCHLORIDE
  19. ALLOPURINOL [Concomitant]
     Active Substance: ALLOPURINOL
  20. FLECAINIDE [Concomitant]
     Active Substance: FLECAINIDE
  21. BENZONATATE [Concomitant]
     Active Substance: BENZONATATE
  22. LEVOFLOXACIN [Concomitant]
     Active Substance: LEVOFLOXACIN
  23. IPRATROPIUM BROMIDE [Concomitant]
     Active Substance: IPRATROPIUM BROMIDE
  24. CARVEDILOL [Concomitant]
     Active Substance: CARVEDILOL
  25. GLIPIZIDE [Concomitant]
     Active Substance: GLIPIZIDE
  26. ELIQUIS [Concomitant]
     Active Substance: APIXABAN

REACTIONS (7)
  - Spinal fracture [Unknown]
  - Mouth injury [Unknown]
  - Malaise [Unknown]
  - Stomatitis [Unknown]
  - Rash [Not Recovered/Not Resolved]
  - Candida infection [Unknown]
  - Product use in unapproved indication [Unknown]

NARRATIVE: CASE EVENT DATE: 20240101
